FAERS Safety Report 4263402-2 (Version None)
Quarter: 2004Q1

REPORT INFORMATION
  Report Type: 
  Country: None (occurrence: None)
  Receive Date: 20040104
  Receipt Date: 20040104
  Transmission Date: 20041129
  Serious: Yes (Other)
  Sender: FDA-Public Use
  Company Number: None

PATIENT
  Age: 86 Year
  Sex: Male
  Weight: 92.0802 kg

DRUGS (12)
  1. FOSINOPRIL SODIUM [Suspect]
     Indication: HYPERTENSION
     Dosage: 20 MG TWICE DAILY ORAL
     Route: 048
     Dates: start: 20000523, end: 20030804
  2. CLONIDINE HCL [Concomitant]
  3. FOLIC ACID [Concomitant]
  4. FUROSEMIDE [Concomitant]
  5. FLUNISOLIDE [Concomitant]
  6. CLOPIDOGREL BISULFATE [Concomitant]
  7. ASPIRIN/DIPYRIDAMOLE [Concomitant]
  8. LANSOPRAZOLE [Concomitant]
  9. NITROGLYCERIN [Concomitant]
  10. CETIRIZINE HCL [Concomitant]
  11. FELODIPINE [Concomitant]
  12. HYDRALAZINE HCL [Concomitant]

REACTIONS (2)
  - ANGIONEUROTIC OEDEMA [None]
  - PENIS DISORDER [None]
